FAERS Safety Report 16354007 (Version 1)
Quarter: 2019Q2

REPORT INFORMATION
  Report Type: Spontaneous
  Country: FR (occurrence: FR)
  Receive Date: 20190524
  Receipt Date: 20190524
  Transmission Date: 20190711
  Serious: Yes (Other)
  Sender: FDA-Public Use
  Company Number: FR-PROVELL PHARMACEUTICALS-2067420

PATIENT
  Age: 49 Year
  Sex: Female
  Weight: 76 kg

DRUGS (2)
  1. EUTHYROX [Suspect]
     Active Substance: LEVOTHYROXINE SODIUM
     Route: 048
     Dates: start: 20181201, end: 20190416
  2. EUTHYROX [Suspect]
     Active Substance: LEVOTHYROXINE SODIUM
     Indication: HYPOTHYROIDISM
     Route: 048
     Dates: start: 20181201, end: 20190416

REACTIONS (12)
  - Blood thyroid stimulating hormone increased [Not Recovered/Not Resolved]
  - Dizziness [Not Recovered/Not Resolved]
  - Headache [Not Recovered/Not Resolved]
  - Insomnia [Not Recovered/Not Resolved]
  - Arthralgia [Not Recovered/Not Resolved]
  - Product formulation issue [Recovered/Resolved]
  - Chest pain [Not Recovered/Not Resolved]
  - Disturbance in attention [Not Recovered/Not Resolved]
  - Fatigue [Not Recovered/Not Resolved]
  - Feeling cold [Not Recovered/Not Resolved]
  - Irritability [Not Recovered/Not Resolved]
  - Onychoclasis [Not Recovered/Not Resolved]

NARRATIVE: CASE EVENT DATE: 20181201
